FAERS Safety Report 9761569 (Version 2)
Quarter: 2013Q4

REPORT INFORMATION
  Report Type: Spontaneous
  Country: US (occurrence: US)
  Receive Date: 20131216
  Receipt Date: 20131216
  Transmission Date: 20140711
  Serious: Yes (Hospitalization)
  Sender: FDA-Public Use
  Company Number: US-US-EMD SERONO, INC.-236673K09USA

PATIENT
  Age: 53 Year
  Sex: Male

DRUGS (5)
  1. REBIF [Suspect]
     Indication: RELAPSING-REMITTING MULTIPLE SCLEROSIS
     Route: 058
     Dates: start: 20041129
  2. MULTIVITAMIN                       /00831701/ [Concomitant]
     Indication: DISCOMFORT
  3. LIPITOR [Concomitant]
     Indication: BLOOD CHOLESTEROL INCREASED
     Route: 048
  4. LEVOTHYROXINE [Concomitant]
     Indication: THYROID DISORDER
  5. BABY ASPIRIN [Concomitant]
     Indication: CARDIAC DISORDER

REACTIONS (1)
  - Squamous cell carcinoma of the oral cavity [Recovered/Resolved]
